FAERS Safety Report 7883175-1 (Version None)
Quarter: 2011Q4

REPORT INFORMATION
  Report Type: 
  Country: None (occurrence: None)
  Receive Date: 20111101
  Receipt Date: 20111101
  Transmission Date: 20120403
  Serious: No
  Sender: FDA-Public Use
  Company Number: None

PATIENT
  Sex: Male
  Weight: 70.7 kg

DRUGS (13)
  1. CISPLATIN [Suspect]
     Dosage: 58 MG
  2. ASPIRIN [Concomitant]
  3. LORAZEPAM [Concomitant]
  4. LOPERAMIDE HCL [Concomitant]
  5. OMEPRAZOLE [Concomitant]
  6. PROCHLORPERAZINE EDISYLATE INJ [Concomitant]
  7. PROMETHAZINE [Concomitant]
  8. AREPITANT [Concomitant]
  9. IRINOTECAN HCL [Suspect]
     Dosage: 100 MG
  10. CHLORPHENIRAMINE-PSE- [Concomitant]
  11. DEXAMETHASONE [Concomitant]
  12. ACETAMINOPHEN [Concomitant]
  13. IBUPROFEN [Concomitant]

REACTIONS (4)
  - ANAEMIA [None]
  - LEUKOPENIA [None]
  - NEUTROPENIA [None]
  - LYMPHOPENIA [None]
